FAERS Safety Report 11307524 (Version 29)
Quarter: 2017Q3

REPORT INFORMATION
  Report Type: Report from Study
  Country: CA (occurrence: CA)
  Receive Date: 20150723
  Receipt Date: 20170719
  Transmission Date: 20171127
  Serious: Yes (Hospitalization, Other)
  Sender: FDA-Public Use
  Company Number: CA-ROCHE-1159386

PATIENT
  Age: 69 Year
  Sex: Female
  Weight: 57 kg

DRUGS (13)
  1. LIPITOR [Concomitant]
     Active Substance: ATORVASTATIN CALCIUM
  2. ACTEMRA [Suspect]
     Active Substance: TOCILIZUMAB
     Route: 042
     Dates: start: 20150407
  3. ALENDRONATE [Concomitant]
     Active Substance: ALENDRONATE SODIUM
     Route: 065
  4. ACTEMRA [Suspect]
     Active Substance: TOCILIZUMAB
     Route: 042
     Dates: start: 20150508
  5. ACTEMRA [Suspect]
     Active Substance: TOCILIZUMAB
     Route: 042
     Dates: start: 20160205
  6. ACTEMRA [Suspect]
     Active Substance: TOCILIZUMAB
     Route: 042
     Dates: start: 20160309
  7. ASPIRIN. [Concomitant]
     Active Substance: ASPIRIN
     Route: 065
  8. RABEPRAZOLE [Concomitant]
     Active Substance: RABEPRAZOLE
  9. ACTEMRA [Suspect]
     Active Substance: TOCILIZUMAB
     Indication: RHEUMATOID ARTHRITIS
     Route: 042
     Dates: start: 20110323
  10. BISOPROLOL [Concomitant]
     Active Substance: BISOPROLOL
  11. ACTEMRA [Suspect]
     Active Substance: TOCILIZUMAB
     Route: 042
     Dates: start: 20141031
  12. ACTEMRA [Suspect]
     Active Substance: TOCILIZUMAB
     Route: 042
     Dates: start: 20150108
  13. ACTEMRA [Suspect]
     Active Substance: TOCILIZUMAB
     Route: 042
     Dates: start: 20120508

REACTIONS (33)
  - Pneumonia bacterial [Recovered/Resolved]
  - Gout [Recovered/Resolved]
  - Loose tooth [Recovered/Resolved]
  - Tooth fracture [Unknown]
  - Oxygen saturation decreased [Unknown]
  - Blood pressure fluctuation [Unknown]
  - Tooth disorder [Not Recovered/Not Resolved]
  - Gingivitis [Unknown]
  - Appendix disorder [Recovered/Resolved]
  - Weight increased [Recovering/Resolving]
  - Toothache [Recovered/Resolved]
  - Hypotension [Unknown]
  - Pain in extremity [Not Recovered/Not Resolved]
  - Eczema [Not Recovered/Not Resolved]
  - Weight decreased [Recovering/Resolving]
  - Rheumatoid arthritis [Recovering/Resolving]
  - Musculoskeletal pain [Recovered/Resolved]
  - Inflammation [Not Recovered/Not Resolved]
  - Hiatus hernia [Unknown]
  - Diarrhoea [Not Recovered/Not Resolved]
  - Dehydration [Unknown]
  - Blood pressure diastolic decreased [Unknown]
  - Pneumonia [Recovered/Resolved]
  - Nasopharyngitis [Recovered/Resolved]
  - Heart rate decreased [Not Recovered/Not Resolved]
  - Oxygen saturation decreased [Unknown]
  - Bronchitis [Recovered/Resolved]
  - Blood pressure diastolic decreased [Recovering/Resolving]
  - Hypotension [Recovering/Resolving]
  - Infusion related reaction [Unknown]
  - Urinary tract infection [Unknown]
  - Dry skin [Not Recovered/Not Resolved]
  - Gastric infection [Recovering/Resolving]

NARRATIVE: CASE EVENT DATE: 20121118
